FAERS Safety Report 6636169-8 (Version None)
Quarter: 2010Q1

REPORT INFORMATION
  Report Type: 
  Country: None (occurrence: None)
  Receive Date: 20100316
  Receipt Date: 20100308
  Transmission Date: 20100710
  Serious: Yes (Hospitalization)
  Sender: FDA-Public Use
  Company Number: US-JNJFOC-20080306025

PATIENT
  Sex: Female
  Weight: 60.33 kg

DRUGS (4)
  1. ORTHO EVRA [Suspect]
     Indication: ENDOMETRIOSIS
     Route: 062
  2. ORTHO EVRA [Suspect]
     Route: 062
  3. ORTHO EVRA [Suspect]
     Indication: DYSMENORRHOEA
     Route: 062
  4. ORTHO EVRA [Suspect]
     Route: 062

REACTIONS (6)
  - CONVULSION [None]
  - LOSS OF CONSCIOUSNESS [None]
  - OFF LABEL USE [None]
  - PLEURAL EFFUSION [None]
  - PULMONARY EMBOLISM [None]
  - PULMONARY INFARCTION [None]
